FAERS Safety Report 14681649 (Version 4)
Quarter: 2018Q2

REPORT INFORMATION
  Report Type: Spontaneous
  Country: FR (occurrence: FR)
  Receive Date: 20180326
  Receipt Date: 20180412
  Transmission Date: 20180711
  Serious: Yes (Life-Threatening, Other)
  Sender: FDA-Public Use
  Company Number: FR-PFIZER INC-2018121061

PATIENT
  Age: 47 Year
  Sex: Female
  Weight: 55 kg

DRUGS (7)
  1. ATRACURIUM BESILATE [Suspect]
     Active Substance: ATRACURIUM BESYLATE
     Indication: GENERAL ANAESTHESIA
     Dosage: 25 MG, UNK
     Route: 042
     Dates: start: 20180213
  2. SUFENTANIL [Suspect]
     Active Substance: SUFENTANIL
     Indication: SPINAL ANAESTHESIA
     Dosage: 10 UG, UNK
     Route: 038
     Dates: start: 20180213
  3. MORPHINE [Suspect]
     Active Substance: MORPHINE
     Indication: ANALGESIC THERAPY
     Dosage: 2 MG, UNK
     Route: 040
     Dates: start: 20180213
  4. PROPOFOL. [Suspect]
     Active Substance: PROPOFOL
     Indication: ANAESTHESIA
     Dosage: UNK
     Route: 042
     Dates: start: 20180213
  5. MORPHINE [Suspect]
     Active Substance: MORPHINE
     Indication: SPINAL ANAESTHESIA
     Dosage: 300 UG, UNK
     Route: 038
     Dates: start: 20180213
  6. DROPERIDOL. [Suspect]
     Active Substance: DROPERIDOL
     Indication: ANALGESIC THERAPY
     Dosage: 2.5 MG, UNK
     Route: 042
     Dates: start: 20180213
  7. ACUPAN [Suspect]
     Active Substance: NEFOPAM HYDROCHLORIDE
     Indication: ANALGESIC THERAPY
     Dosage: 2 ML, 1X/HOUR
     Route: 041
     Dates: start: 20180213

REACTIONS (6)
  - Hypertension [Recovered/Resolved]
  - Coma [Recovered/Resolved]
  - Miosis [Recovered/Resolved]
  - Respiratory arrest [Recovered/Resolved]
  - Neuromuscular block prolonged [Recovered/Resolved]
  - Tachycardia [Recovered/Resolved]

NARRATIVE: CASE EVENT DATE: 20180213
